FAERS Safety Report 25008864 (Version 1)
Quarter: 2025Q1

REPORT INFORMATION
  Report Type: Spontaneous
  Country: US (occurrence: None)
  Receive Date: 20250224
  Receipt Date: 20250224
  Transmission Date: 20250408
  Serious: Yes (Death, Life-Threatening, Hospitalization)
  Sender: FDA-CTU
  Company Number: None

PATIENT
  Age: 74 Year
  Sex: Female
  Weight: 77 kg

DRUGS (2)
  1. TENECTEPLASE [Suspect]
     Active Substance: TENECTEPLASE
     Dates: start: 20241211, end: 20241211
  2. TENECTEPLASE [Concomitant]
     Active Substance: TENECTEPLASE
     Dates: start: 20241211, end: 20241211

REACTIONS (4)
  - Cerebellar haematoma [None]
  - Subarachnoid haemorrhage [None]
  - Haemorrhagic transformation stroke [None]
  - Cerebral mass effect [None]

NARRATIVE: CASE EVENT DATE: 20241211
